FAERS Safety Report 7132535-5 (Version None)
Quarter: 2010Q4

REPORT INFORMATION
  Report Type: 
  Country: None (occurrence: None)
  Receive Date: 20101202
  Receipt Date: 20101119
  Transmission Date: 20110411
  Serious: Yes (Hospitalization, Other)
  Sender: FDA-Public Use
  Company Number: PHHY2009JP45964

PATIENT
  Sex: Female

DRUGS (3)
  1. IMATINIB [Suspect]
     Indication: ACUTE LYMPHOCYTIC LEUKAEMIA
     Dosage: 400 MG, DAILY
     Route: 048
     Dates: start: 20040701, end: 20090901
  2. IMATINIB [Suspect]
     Dosage: 300 MG, DAILY
     Route: 048
     Dates: start: 20090901
  3. HYPER-CVAD [Concomitant]

REACTIONS (14)
  - ANAEMIA [None]
  - COLONIC STENOSIS [None]
  - GASTRIC ANTRAL VASCULAR ECTASIA [None]
  - GASTROINTESTINAL OEDEMA [None]
  - GASTROINTESTINAL TELANGIECTASIA [None]
  - ILEOCOLOSTOMY [None]
  - LASER THERAPY [None]
  - LOWER GASTROINTESTINAL HAEMORRHAGE [None]
  - RECTAL PERFORATION [None]
  - RECTAL STENOSIS [None]
  - RECTAL ULCER [None]
  - SEPSIS [None]
  - STOMA CARE [None]
  - UPPER GASTROINTESTINAL HAEMORRHAGE [None]
